FAERS Safety Report 16914045 (Version 1)
Quarter: 2019Q4

REPORT INFORMATION
  Report Type: Report from Study
  Country: US (occurrence: US)
  Receive Date: 20191014
  Receipt Date: 20191014
  Transmission Date: 20200122
  Serious: Yes (Other)
  Sender: FDA-Public Use
  Company Number: US-MYLANLABS-2019M1095200

PATIENT
  Age: 66 Year
  Sex: Male

DRUGS (1)
  1. NICARDIPINE [Suspect]
     Active Substance: NICARDIPINE
     Indication: BLOOD PRESSURE MEASUREMENT
     Dosage: UNK
     Route: 042

REACTIONS (2)
  - Paradoxical drug reaction [Unknown]
  - Cerebral vasoconstriction [Unknown]
